FAERS Safety Report 4274185-4 (Version None)
Quarter: 2004Q1

REPORT INFORMATION
  Report Type: 
  Country: None (occurrence: None)
  Receive Date: 20040115
  Receipt Date: 20040107
  Transmission Date: 20041129
  Serious: Yes (Other)
  Sender: FDA-Public Use
  Company Number: 2003175275GB

PATIENT
  Age: 70 Year
  Sex: Female

DRUGS (3)
  1. AROMASIN [Suspect]
     Indication: BREAST CANCER
  2. AROMASIN [Suspect]
     Indication: CONDITION AGGRAVATED
  3. MEGACE [Concomitant]

REACTIONS (1)
  - SYNCOPE [None]
